FAERS Safety Report 25462568 (Version 1)
Quarter: 2025Q2

REPORT INFORMATION
  Report Type: Spontaneous
  Country: CN (occurrence: CN)
  Receive Date: 20250620
  Receipt Date: 20250620
  Transmission Date: 20250717
  Serious: Yes (Other)
  Sender: NOVARTIS
  Company Number: CN-002147023-NVSC2025CN096819

PATIENT
  Age: 12 Year
  Sex: Male
  Weight: 41.3 kg

DRUGS (1)
  1. OXCARBAZEPINE [Suspect]
     Active Substance: OXCARBAZEPINE
     Indication: Affective disorder
     Dosage: 0.45 G, BID
     Route: 048
     Dates: start: 20250520, end: 20250526

REACTIONS (4)
  - Rash [Recovering/Resolving]
  - Pruritus [Recovering/Resolving]
  - Drug hypersensitivity [Unknown]
  - Viral rash [Unknown]

NARRATIVE: CASE EVENT DATE: 20250521
